FAERS Safety Report 10255578 (Version 1)
Quarter: 2014Q2

REPORT INFORMATION
  Report Type: Spontaneous
  Country: US (occurrence: US)
  Receive Date: 20140624
  Receipt Date: 20140624
  Transmission Date: 20141212
  Serious: Yes (Other)
  Sender: FDA-Public Use
  Company Number: US-LUNDBECK-DKLU1101128

PATIENT
  Age: 11 Year
  Sex: Male

DRUGS (5)
  1. ONFI [Suspect]
     Indication: PRODUCT USED FOR UNKNOWN INDICATION
     Dates: start: 201404
  2. ONFI [Suspect]
     Dates: start: 201404
  3. ONFI [Suspect]
     Dates: start: 2014
  4. ONFI [Suspect]
     Dates: start: 20140505
  5. DIASTAT [Concomitant]
     Indication: PRODUCT USED FOR UNKNOWN INDICATION

REACTIONS (4)
  - Drug withdrawal convulsions [Unknown]
  - Somnolence [Unknown]
  - Gait disturbance [Unknown]
  - Inappropriate schedule of drug administration [Unknown]
